FAERS Safety Report 7315445-X (Version None)
Quarter: 2011Q1

REPORT INFORMATION
  Report Type: 
  Country: None (occurrence: None)
  Receive Date: 20110218
  Receipt Date: 20110218
  Transmission Date: 20110831
  Serious: Yes (Hospitalization)
  Sender: FDA-Public Use
  Company Number: None

PATIENT
  Age: 83 Year
  Sex: Female
  Weight: 39.8 kg

DRUGS (16)
  1. ALLEGRA [Concomitant]
  2. RESTASIS [Concomitant]
  3. FERROUS SULFATE TAB [Concomitant]
  4. PATANOL [Concomitant]
  5. ATROVENT [Concomitant]
  6. VIT D [Concomitant]
  7. DIGOXIN [Concomitant]
  8. COUMADIN [Suspect]
     Indication: ATRIAL FIBRILLATION
     Dosage: 5 MG / 6 MG MWF/TTHSS PO CHRONIC
     Route: 048
  9. CALTRATE [Concomitant]
  10. FLECAINIDE ACETATE [Concomitant]
  11. MDM [Concomitant]
  12. M.V.I. [Concomitant]
  13. ALTACE [Concomitant]
  14. ASPIRIN [Suspect]
     Indication: ATRIAL FIBRILLATION
     Dosage: 81 MG DAILY PO CHRONIC
     Route: 048
  15. AMBIEN [Concomitant]
  16. VIT C [Concomitant]

REACTIONS (3)
  - INTERNATIONAL NORMALISED RATIO INCREASED [None]
  - HAEMATOCHEZIA [None]
  - HAEMATOCRIT DECREASED [None]
